FAERS Safety Report 8926425 (Version 2)
Quarter: 2012Q4

REPORT INFORMATION
  Report Type: 
  Country: DE (occurrence: DE)
  Receive Date: 20121126
  Receipt Date: 20121128
  Transmission Date: 20130627
  Serious: Yes (Death, Life-Threatening, Hospitalization)
  Sender: FDA-Public Use
  Company Number: DE-009507513-1211DEU009010

PATIENT
  Age: 74 Year
  Sex: Female
  Weight: 62 kg

DRUGS (7)
  1. TEMODAL [Suspect]
     Indication: GLIOBLASTOMA
     Dosage: 120 mg, qd (75mg/m2)
     Dates: start: 20120216, end: 20120314
  2. L-THYROXIN [Concomitant]
     Indication: HYPOTHYROIDISM
     Dosage: 75 Microgram, qd
  3. KEPPRA [Concomitant]
     Indication: CONVULSION PROPHYLAXIS
     Dosage: 1000 mg, bid
  4. PANTOPRAZOLE [Concomitant]
     Indication: DYSPEPSIA
     Dosage: 40 mg, qd
  5. COTRIM FORTE [Concomitant]
     Indication: PROPHYLAXIS
     Dosage: UNK, qd
     Dates: start: 20120216, end: 20120329
  6. DEXAMETHASONE [Concomitant]
     Indication: INTRACRANIAL PRESSURE INCREASED
     Dosage: 8 mg, tid
  7. ATORVASTATIN [Concomitant]
     Dosage: 8 mg, qd

REACTIONS (4)
  - Leukopenia [Fatal]
  - Thrombocytopenia [Fatal]
  - Multi-organ failure [Fatal]
  - Anaemia [Unknown]
